FAERS Safety Report 5716217-X (Version None)
Quarter: 2008Q2

REPORT INFORMATION
  Report Type: 
  Country: None (occurrence: None)
  Receive Date: 20080417
  Receipt Date: 20080211
  Transmission Date: 20081010
  Serious: Yes (Other)
  Sender: FDA-Public Use
  Company Number: CHPA2008US02663

PATIENT
  Age: 17 Year
  Sex: Female
  Weight: 63.5 kg

DRUGS (2)
  1. VAGISTAT-1 [Suspect]
     Indication: VULVOVAGINAL MYCOTIC INFECTION
     Dosage: 300 MG, ONCE/SINGLE, VAGINAL
     Route: 067
     Dates: start: 20080209, end: 20080209
  2. PROZAC [Concomitant]

REACTIONS (1)
  - VAGINAL SWELLING [None]
